FAERS Safety Report 9845920 (Version 1)
Quarter: 2014Q1

REPORT INFORMATION
  Report Type: Spontaneous
  Country: BR (occurrence: BR)
  Receive Date: 20140127
  Receipt Date: 20140127
  Transmission Date: 20141002
  Serious: Yes (Other)
  Sender: FDA-Public Use
  Company Number: BR-SA-2014SA001485

PATIENT
  Sex: Male
  Weight: 58 kg

DRUGS (10)
  1. FABRAZYME [Suspect]
     Indication: FABRY^S DISEASE
     Route: 042
     Dates: start: 20121105
  2. DRUGS FOR OBSTRUCTIVE AIRWAY DISEASES [Concomitant]
     Indication: PREMEDICATION
     Dosage: UNSPECIFIED NEBULIZED BRONCHODILATOR.
  3. FERROUS SULFATE [Concomitant]
     Indication: IRON DEFICIENCY
     Dates: start: 201211, end: 201305
  4. CARVEDILOL [Concomitant]
     Dates: start: 201008
  5. LOSARTAN [Concomitant]
  6. FUROSEMIDE [Concomitant]
  7. SPIRONOLACTONE [Concomitant]
     Indication: CARDIOMYOPATHY
  8. BUDESONIDE/FORMOTEROL [Concomitant]
     Indication: CHRONIC OBSTRUCTIVE PULMONARY DISEASE
     Dosage: 1 SPRAY
     Dates: start: 201008
  9. AEROLIN [Concomitant]
     Indication: CHRONIC OBSTRUCTIVE PULMONARY DISEASE
     Dates: start: 201008
  10. SIMVASTATIN [Concomitant]
     Indication: DYSLIPIDAEMIA
     Dates: start: 201210

REACTIONS (1)
  - Lipids increased [Unknown]
